FAERS Safety Report 17785502 (Version 2)
Quarter: 2020Q2

REPORT INFORMATION
  Report Type: Report from Study
  Country: IN (occurrence: IN)
  Receive Date: 20200513
  Receipt Date: 20200518
  Transmission Date: 20200714
  Serious: Yes (Other)
  Sender: FDA-Public Use
  Company Number: NVSC2020IN086805

PATIENT
  Age: 38 Year
  Sex: Male
  Weight: 80 kg

DRUGS (2)
  1. GALVUS MET [Suspect]
     Active Substance: METFORMIN HYDROCHLORIDE\VILDAGLIPTIN
     Indication: DIABETES MELLITUS
     Dosage: 1 DF, BID (PRE MEAL) (50 MG OF VILDAGLIPTIN AND 500 MG OF METFORMIN)
     Route: 048
     Dates: start: 2016
  2. GEMER [Suspect]
     Active Substance: GLIMEPIRIDE\METFORMIN
     Indication: PRODUCT USED FOR UNKNOWN INDICATION
     Dosage: 1 DF, BID (PRE MEAL)
     Route: 048

REACTIONS (6)
  - Glomerular filtration rate increased [Unknown]
  - Hyperglycaemia [Unknown]
  - Blood triglycerides increased [Unknown]
  - Muscle spasms [Unknown]
  - Glycosylated haemoglobin increased [Unknown]
  - Obesity [Unknown]

NARRATIVE: CASE EVENT DATE: 20191220
